FAERS Safety Report 10253880 (Version 1)
Quarter: 2014Q2

REPORT INFORMATION
  Report Type: Spontaneous
  Country: US (occurrence: US)
  Receive Date: 20140623
  Receipt Date: 20140623
  Transmission Date: 20141212
  Serious: Yes (Other)
  Sender: FDA-Public Use
  Company Number: US-PFIZER INC-2014167879

PATIENT
  Sex: Female

DRUGS (4)
  1. LIPITOR [Suspect]
     Indication: BLOOD CHOLESTEROL INCREASED
     Dosage: UNK
     Dates: start: 2012, end: 2013
  2. HYDROCODONE/ACETAMINOPHEN [Concomitant]
     Indication: BACK PAIN
     Dosage: 10/325 MG
  3. METOPROLOL [Concomitant]
     Indication: HYPERTENSION
     Dosage: 100 MG, 2X/DAY (2 TABLETS OF 50 MG IN MORNING AND 2 TABLETS OF 50 MG AT NIGHT)
  4. VITAMIN D [Concomitant]
     Dosage: 2000 IU, DAILY

REACTIONS (9)
  - Glucose tolerance impaired [Unknown]
  - Blood glucose increased [Unknown]
  - Visual impairment [Unknown]
  - Liver disorder [Unknown]
  - Pain in extremity [Unknown]
  - Dysstasia [Unknown]
  - Pain [Unknown]
  - Burning sensation [Unknown]
  - Fatigue [Unknown]
